FAERS Safety Report 8511250-7 (Version None)
Quarter: 2012Q3

REPORT INFORMATION
  Report Type: 
  Country: None (occurrence: None)
  Receive Date: 20120716
  Receipt Date: 20120710
  Transmission Date: 20120928
  Serious: Yes (Hospitalization)
  Sender: FDA-Public Use
  Company Number: US-BAYER-2011-122201

PATIENT
  Age: 35 Year
  Sex: Female
  Weight: 87.075 kg

DRUGS (13)
  1. HYDROCHLOROTHIAZIDE [Concomitant]
     Dosage: 25 MG, QD
     Dates: start: 20091101
  2. VALTREX [Concomitant]
     Dosage: 1 G, UNK
  3. YAZ [Suspect]
     Indication: ACNE
  4. YAZ [Suspect]
     Indication: PREMENSTRUAL SYNDROME
  5. HYDROCODONE BITARTRATE AND ACETAMINOPHEN [Concomitant]
     Dosage: 7.5-500
  6. ZOVIRAX [Concomitant]
     Dosage: 5 %, UNK
  7. PHENTERMINE [Concomitant]
     Dosage: 37.5 MG, UNK
  8. ZESTRIL [Concomitant]
     Dosage: UNK
     Dates: start: 20080501, end: 20100901
  9. YAZ [Suspect]
  10. PROCTOSOL HC [Concomitant]
     Dosage: 2.5 %, UNK
  11. YAZ [Suspect]
     Indication: CONTRACEPTION
     Dosage: UNK
     Dates: start: 20090330, end: 20100223
  12. ALPRAZOLAM [Concomitant]
     Indication: ANXIETY
     Dosage: UNK
     Dates: start: 20081001, end: 20100501
  13. ANUCORT-HC [Concomitant]
     Dosage: 25 MG, SUPPOSITORY

REACTIONS (3)
  - CHOLECYSTITIS CHRONIC [None]
  - GALLBLADDER DISORDER [None]
  - INJURY [None]
